FAERS Safety Report 21472646 (Version 1)
Quarter: 2022Q4

REPORT INFORMATION
  Report Type: Spontaneous
  Country: US (occurrence: US)
  Receive Date: 20221018
  Receipt Date: 20221018
  Transmission Date: 20230113
  Serious: Yes (Other)
  Sender: FDA-Public Use
  Company Number: ALC2022US004800

PATIENT
  Age: 81 Year
  Sex: Female

DRUGS (25)
  1. ATROPINE [Suspect]
     Active Substance: ATROPINE
     Indication: Pseudomonas infection
     Dosage: UNK UNK, QD
     Route: 061
  2. ATROPINE [Suspect]
     Active Substance: ATROPINE
     Indication: Necrotising scleritis
  3. ATROPINE [Suspect]
     Active Substance: ATROPINE
     Indication: Infective scleritis
  4. TOBRAMYCIN [Suspect]
     Active Substance: TOBRAMYCIN
     Indication: Pseudomonas infection
     Dosage: UNK, Q2H (FORTIFIED VANCOMYCIN AND TOBRAMYCIN EYEDROPS ALTERNATING EVERY HOUR)
     Route: 065
  5. TOBRAMYCIN [Suspect]
     Active Substance: TOBRAMYCIN
     Indication: Necrotising scleritis
     Dosage: UNK (FORTIFIED TOBRAMYCIN)
     Route: 065
  6. TOBRAMYCIN [Suspect]
     Active Substance: TOBRAMYCIN
     Indication: Infective scleritis
  7. VANCOMYCIN [Suspect]
     Active Substance: VANCOMYCIN
     Indication: Pseudomonas infection
     Dosage: UNK, Q2H (FORTIFIED VANCOMYCIN AND TOBRAMYCIN EYEDROPS ALTERNATING EVERY HOUR)
     Route: 065
  8. VANCOMYCIN [Suspect]
     Active Substance: VANCOMYCIN
     Indication: Necrotising scleritis
     Dosage: UNK
     Route: 042
  9. VANCOMYCIN [Suspect]
     Active Substance: VANCOMYCIN
     Indication: Infective scleritis
  10. DORZOLAMIDE HYDROCHLORIDE AND TIMOLOL MALEATE [Suspect]
     Active Substance: DORZOLAMIDE HYDROCHLORIDE\TIMOLOL MALEATE
     Indication: Intraocular pressure increased
     Route: 061
  11. PREDNISOLONE ACETATE [Suspect]
     Active Substance: PREDNISOLONE ACETATE
     Indication: Pseudomonas infection
     Dosage: UNK, BID (WAS ADDED ON THE THIRD DAY OF ANTIBIOTICS)
     Route: 061
  12. PREDNISOLONE ACETATE [Suspect]
     Active Substance: PREDNISOLONE ACETATE
     Indication: Necrotising scleritis
  13. PREDNISOLONE ACETATE [Suspect]
     Active Substance: PREDNISOLONE ACETATE
     Indication: Infective scleritis
  14. CIPROFLOXACIN [Suspect]
     Active Substance: CIPROFLOXACIN
     Indication: Pseudomonas infection
     Dosage: 500 MG, BID
     Route: 048
  15. CIPROFLOXACIN [Suspect]
     Active Substance: CIPROFLOXACIN
     Indication: Necrotising scleritis
  16. CIPROFLOXACIN [Suspect]
     Active Substance: CIPROFLOXACIN
     Indication: Infective scleritis
  17. DIFLUPREDNATE [Suspect]
     Active Substance: DIFLUPREDNATE
     Indication: Pseudomonas infection
     Dosage: UNK UNK, QID
     Route: 065
  18. DIFLUPREDNATE [Suspect]
     Active Substance: DIFLUPREDNATE
     Indication: Necrotising scleritis
  19. DIFLUPREDNATE [Suspect]
     Active Substance: DIFLUPREDNATE
     Indication: Infective scleritis
  20. CEFEPIME [Suspect]
     Active Substance: CEFEPIME HYDROCHLORIDE
     Indication: Pseudomonas infection
     Dosage: UNK
     Route: 065
  21. CEFEPIME [Suspect]
     Active Substance: CEFEPIME HYDROCHLORIDE
     Indication: Necrotising scleritis
  22. CEFEPIME [Suspect]
     Active Substance: CEFEPIME HYDROCHLORIDE
     Indication: Infective scleritis
  23. CEFTAZIDIME [Suspect]
     Active Substance: CEFTAZIDIME
     Indication: Pseudomonas infection
     Dosage: UNK, QH (HOURLY)
     Route: 065
  24. CEFTAZIDIME [Suspect]
     Active Substance: CEFTAZIDIME
     Indication: Necrotising scleritis
  25. CEFTAZIDIME [Suspect]
     Active Substance: CEFTAZIDIME
     Indication: Infective scleritis

REACTIONS (5)
  - Necrotising scleritis [Recovering/Resolving]
  - Pseudomonas infection [Recovering/Resolving]
  - Infective scleritis [Recovering/Resolving]
  - Disease progression [Recovering/Resolving]
  - Product use in unapproved indication [Unknown]
